FAERS Safety Report 24281288 (Version 1)
Quarter: 2024Q3

REPORT INFORMATION
  Report Type: Spontaneous
  Country: US (occurrence: US)
  Receive Date: 20240904
  Receipt Date: 20240904
  Transmission Date: 20241017
  Serious: No
  Sender: COVIS PHARMA
  Company Number: US-Covis Pharma GmbH-2024COV01025

PATIENT

DRUGS (1)
  1. ALVESCO [Suspect]
     Active Substance: CICLESONIDE
     Route: 055

REACTIONS (2)
  - Migraine [Recovered/Resolved]
  - Product dose omission issue [Unknown]
